FAERS Safety Report 4582363-X (Version None)
Quarter: 2005Q1

REPORT INFORMATION
  Report Type: 
  Country: None (occurrence: None)
  Receive Date: 20050119
  Receipt Date: 20040218
  Transmission Date: 20050727
  Serious: Yes (Death, Hospitalization, Other)
  Sender: FDA-Public Use
  Company Number: US-JNJFOC-20031102001

PATIENT
  Age: 85 Year
  Sex: Female
  Weight: 71.2147 kg

DRUGS (15)
  1. DOXIL [Suspect]
     Indication: NON-HODGKIN'S LYMPHOMA
     Dosage: 80 MG, INTRAVENOUS, X2 CYCLES
     Route: 042
     Dates: start: 20030127, end: 20030310
  2. VINBLASTINE SULFATE [Concomitant]
  3. DACARBAZINE [Concomitant]
  4. DECADRON [Concomitant]
  5. ZOFRAN [Concomitant]
  6. BENADRYL (DIPHENYDRAMINE HYDROCHLORIDE) [Concomitant]
  7. CELEXA [Concomitant]
  8. LASIX [Concomitant]
  9. REGLAN [Concomitant]
  10. PREVACID [Concomitant]
  11. SINGULAIR [Concomitant]
  12. TIAZAC [Concomitant]
  13. VIOXX [Concomitant]
  14. ZYRTEC [Concomitant]
  15. PHENERGAN [Concomitant]

REACTIONS (7)
  - CONVULSION [None]
  - ESCHERICHIA SEPSIS [None]
  - ILEUS [None]
  - NAUSEA [None]
  - NEUTROPENIA [None]
  - NON-HODGKIN'S LYMPHOMA [None]
  - PNEUMONIA [None]
